FAERS Safety Report 25485423 (Version 2)
Quarter: 2025Q3

REPORT INFORMATION
  Report Type: Report from Study
  Country: US (occurrence: US)
  Receive Date: 20250626
  Receipt Date: 20250725
  Transmission Date: 20251020
  Serious: Yes (Other)
  Sender: PFIZER
  Company Number: US-PFIZER INC-PV202500015027

PATIENT
  Age: 48 Year
  Sex: Female

DRUGS (7)
  1. IBRANCE [Suspect]
     Active Substance: PALBOCICLIB
     Indication: Breast cancer metastatic
     Route: 048
     Dates: start: 20250128
  2. IBRANCE [Suspect]
     Active Substance: PALBOCICLIB
     Route: 048
  3. IBRANCE [Suspect]
     Active Substance: PALBOCICLIB
     Route: 048
  4. IBRANCE [Suspect]
     Active Substance: PALBOCICLIB
     Route: 048
  5. IBRANCE [Suspect]
     Active Substance: PALBOCICLIB
     Route: 048
  6. IBRANCE [Suspect]
     Active Substance: PALBOCICLIB
     Route: 048
     Dates: start: 20250128
  7. LETROZOLE [Concomitant]
     Active Substance: LETROZOLE
     Dosage: DAILY

REACTIONS (33)
  - Neuropathy peripheral [Unknown]
  - Intentional self-injury [Unknown]
  - Nausea [Recovered/Resolved]
  - Motion sickness [Recovered/Resolved]
  - Malaise [Recovered/Resolved]
  - Decreased appetite [Not Recovered/Not Resolved]
  - Middle insomnia [Unknown]
  - Fatigue [Unknown]
  - Amnesia [Unknown]
  - Dizziness [Unknown]
  - Nasal discharge discolouration [Unknown]
  - Rhinorrhoea [Unknown]
  - Weight decreased [Unknown]
  - Abdominal discomfort [Unknown]
  - Chest discomfort [Unknown]
  - Dyspnoea exertional [Unknown]
  - White blood cell count decreased [Unknown]
  - Condition aggravated [Unknown]
  - Anaemia [Unknown]
  - Vomiting [Not Recovered/Not Resolved]
  - Asthenia [Unknown]
  - Dry mouth [Unknown]
  - Alopecia [Unknown]
  - Arthralgia [Unknown]
  - Pain [Unknown]
  - Constipation [Recovered/Resolved]
  - Balance disorder [Unknown]
  - Gingival bleeding [Unknown]
  - Red blood cell count decreased [Unknown]
  - Haemorrhage [Unknown]
  - Contusion [Unknown]
  - Musculoskeletal stiffness [Unknown]
  - Joint stiffness [Unknown]

NARRATIVE: CASE EVENT DATE: 20250101
